FAERS Safety Report 17939218 (Version 1)
Quarter: 2020Q2

REPORT INFORMATION
  Report Type: Spontaneous
  Country: TR (occurrence: TR)
  Receive Date: 20200624
  Receipt Date: 20200624
  Transmission Date: 20200714
  Serious: Yes (Hospitalization, Other)
  Sender: FDA-Public Use
  Company Number: TR-ABBVIE-20K-161-3454680-00

PATIENT
  Sex: Female
  Weight: 25 kg

DRUGS (1)
  1. LUCRIN DEPOT [Suspect]
     Active Substance: LEUPROLIDE ACETATE
     Indication: PRECOCIOUS PUBERTY
     Route: 030
     Dates: start: 20190925, end: 20191106

REACTIONS (3)
  - Facial paralysis [Recovering/Resolving]
  - Lacunar stroke [Unknown]
  - Hemiplegia [Recovering/Resolving]
